FAERS Safety Report 15157543 (Version 1)
Quarter: 2018Q3

REPORT INFORMATION
  Report Type: Spontaneous
  Country: US (occurrence: US)
  Receive Date: 20180718
  Receipt Date: 20180718
  Transmission Date: 20181010
  Serious: No
  Sender: FDA-Public Use
  Company Number: US-B.I. PHARMACEUTICALS,INC./RIDGEFIELD-2018-BI-035835

PATIENT
  Sex: Male

DRUGS (2)
  1. SPIRIVA RESPIMAT [Suspect]
     Active Substance: TIOTROPIUM BROMIDE
     Indication: DRUG THERAPY
     Dosage: ONE PUFF ONCE A DAY STRENGTH: 2.5 MCG; FORMULATION: INHALATION SPRAY ACTION TAKEN: DOSE NOT CHANGED
     Route: 055
     Dates: start: 2017
  2. HUMULIN R INSULIN [Concomitant]
     Indication: DIABETES MELLITUS
     Dosage: TID;  FORM STRENGTH: 15UNITS
     Route: 065
     Dates: start: 1997

REACTIONS (1)
  - Dyspnoea [Not Recovered/Not Resolved]

NARRATIVE: CASE EVENT DATE: 2018
